FAERS Safety Report 12509288 (Version 4)
Quarter: 2016Q3

REPORT INFORMATION
  Report Type: Spontaneous
  Country: US (occurrence: US)
  Receive Date: 20160629
  Receipt Date: 20160928
  Transmission Date: 20161109
  Serious: No
  Sender: FDA-Public Use
  Company Number: US-BRISTOL-MYERS SQUIBB COMPANY-BMS-2016-052357

PATIENT
  Sex: Male
  Weight: 69.39 kg

DRUGS (2)
  1. SPRYCEL [Suspect]
     Active Substance: DASATINIB
     Indication: CHRONIC MYELOID LEUKAEMIA
     Dosage: 140 MG, QD
     Route: 048
     Dates: start: 20150324
  2. SPRYCEL [Suspect]
     Active Substance: DASATINIB
     Dosage: 140 MG, QD
     Route: 048

REACTIONS (3)
  - Headache [Unknown]
  - Rash [Unknown]
  - Skin irritation [Unknown]
